FAERS Safety Report 21638086 (Version 2)
Quarter: 2022Q4

REPORT INFORMATION
  Report Type: Report from Study
  Country: US (occurrence: US)
  Receive Date: 20221124
  Receipt Date: 20221208
  Transmission Date: 20230113
  Serious: No
  Sender: FDA-Public Use
  Company Number: US-ABBVIE-4200395

PATIENT
  Sex: Female

DRUGS (1)
  1. HUMIRA [Suspect]
     Active Substance: ADALIMUMAB
     Indication: Crohn^s disease
     Route: 058

REACTIONS (4)
  - Fall [Not Recovered/Not Resolved]
  - Appetite disorder [Not Recovered/Not Resolved]
  - Haemoglobin abnormal [Recovered/Resolved]
  - Tremor [Not Recovered/Not Resolved]
